FAERS Safety Report 18275308 (Version 1)
Quarter: 2020Q3

REPORT INFORMATION
  Report Type: Spontaneous
  Country: NL (occurrence: NL)
  Receive Date: 20200916
  Receipt Date: 20200916
  Transmission Date: 20201103
  Serious: Yes (Life-Threatening)
  Sender: FDA-Public Use
  Company Number: NL-TEVA-251996ISR

PATIENT
  Age: 92 Year
  Sex: Female

DRUGS (10)
  1. FUROSEMIDE. [Suspect]
     Active Substance: FUROSEMIDE
     Dosage: 20 MILLIGRAM DAILY;
     Dates: start: 20100809, end: 20100826
  2. MELATONIN [Concomitant]
     Active Substance: MELATONIN
     Dosage: 4 DOSAGE FORMS DAILY;
     Dates: start: 20090409
  3. ECHINACEA PURPUREA EXTRACT [Concomitant]
     Dosage: 20 GTT DAILY; 20 DROPS A DAY
     Dates: start: 20080718
  4. ZALMOLIE [Concomitant]
     Dosage: 3 DOSAGE FORMS DAILY;
     Dates: start: 20100728
  5. ZINC SULFATE. [Concomitant]
     Active Substance: ZINC SULFATE
     Dosage: 1 DOSAGE FORMS DAILY;
     Dates: start: 20070309
  6. GERIAFORCE [Concomitant]
     Dosage: 20 GTT DAILY; 20 DROPS A DAY
     Dates: start: 20080718
  7. LISINOPRIL. [Suspect]
     Active Substance: LISINOPRIL
     Indication: HYPERTENSION
     Dosage: 5 MILLIGRAM DAILY;
     Dates: start: 20100809, end: 20100813
  8. MULTIVITAMIN [Concomitant]
     Active Substance: VITAMINS
     Dosage: 2 DOSAGE FORMS DAILY;
     Dates: start: 20090407
  9. VISOLIE [Concomitant]
     Dosage: 2 DOSAGE FORMS DAILY;
     Dates: start: 20080718
  10. VITAMINS NOS [Concomitant]
     Active Substance: VITAMINS
     Dates: start: 20070511

REACTIONS (3)
  - Aggression [Not Recovered/Not Resolved]
  - Cardiac failure [Not Recovered/Not Resolved]
  - Cardiac asthma [Not Recovered/Not Resolved]

NARRATIVE: CASE EVENT DATE: 20100813
